FAERS Safety Report 23730298 (Version 1)
Quarter: 2024Q2

REPORT INFORMATION
  Report Type: Report from Study
  Country: CA (occurrence: CA)
  Receive Date: 20240411
  Receipt Date: 20240411
  Transmission Date: 20240716
  Serious: Yes (Other)
  Sender: FDA-Public Use
  Company Number: CA-SAMSUNG BIOEPIS-SB-2024-10364

PATIENT
  Age: 39 Year
  Sex: Male

DRUGS (1)
  1. BYOOVIZ [Suspect]
     Active Substance: RANIBIZUMAB-NUNA
     Indication: Diabetic retinal oedema
     Dosage: STRENGTH: 10 MG/ML; ROUTE: INTRAVITREAL
     Route: 031
     Dates: start: 20240220

REACTIONS (1)
  - Eye haemorrhage [Not Recovered/Not Resolved]
